FAERS Safety Report 13854361 (Version 1)
Quarter: 2017Q3

REPORT INFORMATION
  Report Type: Spontaneous
  Country: US (occurrence: US)
  Receive Date: 20170810
  Receipt Date: 20170810
  Transmission Date: 20171127
  Serious: No
  Sender: FDA-Public Use
  Company Number: US-GLAXOSMITHKLINE-US2017GSK121764

PATIENT
  Age: 66 Year
  Sex: Male

DRUGS (1)
  1. REQUIP [Suspect]
     Active Substance: ROPINIROLE HYDROCHLORIDE
     Dosage: UNK
     Dates: end: 2016

REACTIONS (7)
  - Gambling disorder [Unknown]
  - Gambling [Unknown]
  - Personality change [Unknown]
  - Intentional product misuse [Unknown]
  - Underdose [Unknown]
  - Anger [Unknown]
  - Ill-defined disorder [Unknown]
